FAERS Safety Report 10060474 (Version 1)
Quarter: 2014Q2

REPORT INFORMATION
  Report Type: Spontaneous
  Country: US (occurrence: US)
  Receive Date: 20140404
  Receipt Date: 20140404
  Transmission Date: 20141212
  Serious: No
  Sender: FDA-Public Use
  Company Number: US-BAYER-2014-045033

PATIENT
  Age: 48 Year
  Sex: Female

DRUGS (2)
  1. SKYLA [Suspect]
     Indication: MENORRHAGIA
     Dosage: UNK
     Dates: start: 20140312, end: 20140312
  2. SKYLA [Suspect]
     Indication: CONTRACEPTION

REACTIONS (2)
  - Post procedural discomfort [None]
  - Device difficult to use [None]
